FAERS Safety Report 7865314-1 (Version None)
Quarter: 2011Q4

REPORT INFORMATION
  Report Type: 
  Country: None (occurrence: None)
  Receive Date: 20111028
  Receipt Date: 20101122
  Transmission Date: 20120403
  Serious: No
  Sender: FDA-Public Use
  Company Number: US-GLAXOSMITHKLINE-A0894515A

PATIENT
  Age: 87 Year
  Sex: Male

DRUGS (7)
  1. PREDNISONE [Concomitant]
  2. IV THERAPY [Concomitant]
  3. BETA BLOCKER [Concomitant]
  4. ASPIRIN [Concomitant]
  5. ADVAIR DISKUS 100/50 [Suspect]
     Indication: CHRONIC OBSTRUCTIVE PULMONARY DISEASE
     Dosage: 1PUFF TWICE PER DAY
     Route: 055
     Dates: start: 20101115
  6. NEBULIZER [Concomitant]
  7. COUMADIN [Concomitant]

REACTIONS (5)
  - DRUG INEFFECTIVE [None]
  - PRODUCT QUALITY ISSUE [None]
  - FLUSHING [None]
  - FEELING HOT [None]
  - FEELING OF RELAXATION [None]
